FAERS Safety Report 26033138 (Version 2)
Quarter: 2025Q4

REPORT INFORMATION
  Report Type: Spontaneous
  Country: EU (occurrence: EU)
  Receive Date: 20251112
  Receipt Date: 20251128
  Transmission Date: 20260117
  Serious: Yes (Other)
  Sender: AUROBINDO
  Company Number: EU-LRB-01093929

PATIENT
  Age: 49 Year
  Sex: Female
  Weight: 67 kg

DRUGS (4)
  1. CIPROFLOXACIN [Suspect]
     Active Substance: CIPROFLOXACIN
     Indication: Pneumonia
     Dosage: 750 MILLIGRAM, TWO TIMES A DAY
     Dates: start: 20070315, end: 20120813
  2. ALBUTEROL [Concomitant]
     Active Substance: ALBUTEROL
     Indication: Product used for unknown indication
     Dosage: 100 MICROGRAM  PER DOSE
  3. PANTOPRAZOL TABLET MSR 20MG / MAAGZUURTABLET PANTOPRAZOL HTP TABLET MS [Concomitant]
     Indication: Product used for unknown indication
     Dosage: 20 MILLIGRAM
  4. BECLOMETASON AEROSOL 100UG/DO / Brand name not specified [Concomitant]
     Indication: Product used for unknown indication
     Dosage: 100 MICROGRAM PER DOSE

REACTIONS (4)
  - Tendon disorder [Not Recovered/Not Resolved]
  - Tendon pain [Not Recovered/Not Resolved]
  - Polyneuropathy [Not Recovered/Not Resolved]
  - Small fibre neuropathy [Not Recovered/Not Resolved]
